FAERS Safety Report 15460630 (Version 2)
Quarter: 2018Q4

REPORT INFORMATION
  Report Type: Spontaneous
  Country: CA (occurrence: CA)
  Receive Date: 20181003
  Receipt Date: 20181025
  Transmission Date: 20190204
  Serious: Yes (Death, Other)
  Sender: FDA-Public Use
  Company Number: CA-GILEAD-2018-0366232

PATIENT
  Age: 61 Year
  Sex: Male

DRUGS (27)
  1. LANTUS [Concomitant]
     Active Substance: INSULIN GLARGINE
  2. ATORVASTATIN [Concomitant]
     Active Substance: ATORVASTATIN
  3. VENLAFAXINE [Concomitant]
     Active Substance: VENLAFAXINE HYDROCHLORIDE
  4. HYDROXYZINE [Concomitant]
     Active Substance: HYDROXYZINE HYDROCHLORIDE
  5. VITAMIN B1 [Concomitant]
     Active Substance: THIAMINE HYDROCHLORIDE
  6. ASPIRIN                            /00002701/ [Concomitant]
     Active Substance: ASPIRIN
  7. DUTASTERIDE. [Concomitant]
     Active Substance: DUTASTERIDE
  8. AVENTYL [Concomitant]
     Active Substance: NORTRIPTYLINE HYDROCHLORIDE
  9. REFRESH LIQUIGEL [Concomitant]
     Active Substance: CARBOXYMETHYLCELLULOSE SODIUM
  10. ISOPROPYL ALCOHOL. [Concomitant]
     Active Substance: ISOPROPYL ALCOHOL
  11. JAMP ASA [Concomitant]
  12. HUMALOG [Concomitant]
     Active Substance: INSULIN LISPRO
  13. OMEPRAZOLE. [Concomitant]
     Active Substance: OMEPRAZOLE
  14. OLESTYR [Concomitant]
     Active Substance: CHOLESTYRAMINE
  15. TAMULOSIN [Concomitant]
     Active Substance: TAMSULOSIN
  16. HYDROMORPHONE [Concomitant]
     Active Substance: HYDROMORPHONE
  17. DULOXETINE. [Concomitant]
     Active Substance: DULOXETINE
  18. TAMSULOSIN [Concomitant]
     Active Substance: TAMSULOSIN
  19. VOSEVI [Suspect]
     Active Substance: SOFOSBUVIR\VELPATASVIR\VOXILAPREVIR
     Indication: CHRONIC HEPATITIS C
     Dosage: UNK
     Route: 065
     Dates: start: 2018
  20. DIVALPROEX [Concomitant]
     Active Substance: DIVALPROEX SODIUM
  21. VITAMIN B [Concomitant]
     Active Substance: VITAMIN B
  22. VITAMIN D [Concomitant]
     Active Substance: CHOLECALCIFEROL
  23. VITAMIN D3 [Concomitant]
     Active Substance: CHOLECALCIFEROL
  24. ASA [Concomitant]
     Active Substance: ASPIRIN
  25. DOMPERIDONE [Concomitant]
     Active Substance: DOMPERIDONE
  26. PREGABALIN. [Concomitant]
     Active Substance: PREGABALIN
  27. CONTOUR                            /01479302/ [Concomitant]

REACTIONS (1)
  - Death [Fatal]

NARRATIVE: CASE EVENT DATE: 20180927
